FAERS Safety Report 22523101 (Version 1)
Quarter: 2023Q2

REPORT INFORMATION
  Report Type: Other
  Country: None (occurrence: US)
  Receive Date: 20230606
  Receipt Date: 20230606
  Transmission Date: 20230722
  Serious: Yes (Hospitalization, Other)
  Sender: FDA-Public Use
  Company Number: US-Appco Pharma LLC-2142349

PATIENT
  Sex: Male

DRUGS (2)
  1. HYDROXYCHLOROQUINE SULFATE [Suspect]
     Active Substance: HYDROXYCHLOROQUINE SULFATE
     Indication: Respiratory symptom
     Route: 048
  2. INSULIN NOS [Concomitant]
     Active Substance: INSULIN NOS
     Route: 065

REACTIONS (5)
  - Accidental overdose [Recovered/Resolved]
  - Lethargy [Recovered/Resolved]
  - Hypotension [Recovered/Resolved]
  - Electrocardiogram QRS complex prolonged [Recovered/Resolved]
  - Hypokalaemia [Recovered/Resolved]
